FAERS Safety Report 17579534 (Version 1)
Quarter: 2020Q1

REPORT INFORMATION
  Report Type: Spontaneous
  Country: DK (occurrence: DK)
  Receive Date: 20200325
  Receipt Date: 20200325
  Transmission Date: 20200409
  Serious: Yes (Death)
  Sender: FDA-Public Use
  Company Number: DK-TEVA-2020-DK-1208916

PATIENT
  Age: 66 Year
  Sex: Male

DRUGS (2)
  1. RISOLID [Suspect]
     Active Substance: CHLORDIAZEPOXIDE
     Indication: ALCOHOL ABUSE
     Dosage: 2 TABLETS DAILY.
     Route: 048
     Dates: start: 20170922
  2. KLOPOXID ^TAKEDA^ [Suspect]
     Active Substance: CHLORDIAZEPOXIDE
     Indication: ALCOHOL ABUSE
     Dosage: 250 MG DAILY.
     Route: 048
     Dates: start: 20170928

REACTIONS (4)
  - Cardiac arrest [Fatal]
  - Intentional overdose [Fatal]
  - Loss of consciousness [Fatal]
  - Depressed level of consciousness [Fatal]

NARRATIVE: CASE EVENT DATE: 20170928
